FAERS Safety Report 8811177 (Version 1)
Quarter: 2012Q4

REPORT INFORMATION
  Report Type: Spontaneous
  Country: US (occurrence: None)
  Receive Date: 20120925
  Receipt Date: 20120925
  Transmission Date: 20130627
  Serious: No
  Sender: FDA-Public Use
  Company Number: None

PATIENT
  Age: 70 Year
  Sex: Female
  Weight: 90.72 kg

DRUGS (1)
  1. IBUPROFEN [Suspect]
     Indication: FOOT PAIN
     Dosage: 1 3 times a day

REACTIONS (3)
  - Restless legs syndrome [None]
  - Logorrhoea [None]
  - Unevaluable event [None]
